FAERS Safety Report 9179805 (Version 1)
Quarter: 2012Q4

REPORT INFORMATION
  Report Type: 
  Country: AU (occurrence: AU)
  Receive Date: 20121029
  Receipt Date: 20121029
  Transmission Date: 20130627
  Serious: Yes (Hospitalization)
  Sender: FDA-Public Use
  Company Number: AU-MERCK-1210AUS010427

PATIENT
  Age: 51 Year
  Sex: Male

DRUGS (5)
  1. ROCURONIUM BROMIDE [Suspect]
     Dosage: 50 mg, Once
  2. PROPOFOL [Suspect]
  3. CRESTOR [Concomitant]
     Dosage: 40 mg, UNK
  4. HEPARIN SODIUM [Concomitant]
  5. SOMAC [Concomitant]
     Dosage: 40 mg, UNK

REACTIONS (5)
  - Dystonia [Recovered/Resolved]
  - Unresponsive to stimuli [Recovered/Resolved]
  - Pupil fixed [Recovered/Resolved]
  - Respiratory depression [Recovered/Resolved]
  - Dyskinesia [Recovered/Resolved]
